FAERS Safety Report 6719810-0 (Version None)
Quarter: 2010Q2

REPORT INFORMATION
  Report Type: 
  Country: None (occurrence: None)
  Receive Date: 20100511
  Receipt Date: 20100428
  Transmission Date: 20101027
  Serious: Yes (Hospitalization)
  Sender: FDA-Public Use
  Company Number: PHHY2010NL19826

PATIENT
  Sex: Male

DRUGS (16)
  1. ZOMETA [Suspect]
     Dosage: 4 MG/ 5 ML, (100 ML 0.9% NACL, RYTHMIC SET 160 ML)
     Dates: start: 20090313
  2. ZOMETA [Suspect]
     Dosage: 4 MG/ 5 ML, (100 ML 0.9% NACL, RYTHMIC SET 160 ML)
     Dates: start: 20090408
  3. ZOMETA [Suspect]
     Dosage: 4 MG/ 5 ML, (100 ML 0.9% NACL, RYTHMIC SET 160 ML)
     Dates: start: 20090506
  4. ZOMETA [Suspect]
     Dosage: 4 MG/ 5 ML, (100 ML 0.9% NACL, RYTHMIC SET 160 ML)
     Dates: start: 20090615
  5. ZOMETA [Suspect]
     Dosage: 4 MG/ 5 ML, (100 ML 0.9% NACL, RYTHMIC SET 160 ML)
     Dates: start: 20090714
  6. ZOMETA [Suspect]
     Dosage: 4 MG/ 5 ML, (100 ML 0.9% NACL, RYTHMIC SET 160 ML)
     Dates: start: 20090811
  7. ZOMETA [Suspect]
     Dosage: 4 MG/ 5 ML, (100 ML 0.9% NACL, RYTHMIC SET 160 ML)
     Dates: start: 20090908
  8. ZOMETA [Suspect]
     Dosage: 4 MG/ 5 ML, (100 ML 0.9% NACL, RYTHMIC SET 160 ML)
     Dates: start: 20091006
  9. ZOMETA [Suspect]
     Dosage: 4 MG/ 5 ML, (100 ML 0.9% NACL, RYTHMIC SET 160 ML)
     Dates: start: 20091106
  10. ZOMETA [Suspect]
     Dosage: 4 MG/ 5 ML, (100 ML 0.9% NACL, RYTHMIC SET 160 ML)
     Dates: start: 20091202
  11. ZOMETA [Suspect]
     Dosage: 4 MG/ 5 ML, (100 ML 0.9% NACL, RYTHMIC SET 160 ML)
     Dates: start: 20100105
  12. ZOMETA [Suspect]
     Dosage: 4 MG/ 5 ML, (100 ML 0.9% NACL, RYTHMIC SET 160 ML)
  13. ZOMETA [Suspect]
     Dosage: 4 MG/ 5 ML, (100 ML 0.9% NACL, RYTHMIC SET 160 ML)
     Dates: start: 20100202
  14. ZOMETA [Suspect]
     Dosage: 4 MG/ 5 ML, (100 ML 0.9% NACL, RYTHMIC SET 160 ML)
     Dates: start: 20100303
  15. ZOMETA [Suspect]
     Dosage: 4 MG/ 5 ML, (100 ML 0.9% NACL, RYTHMIC SET 160 ML)
     Dates: start: 20100330
  16. CHEMOTHERAPEUTICS NOS [Suspect]

REACTIONS (10)
  - ARTHRALGIA [None]
  - BLOOD PRESSURE DECREASED [None]
  - CHILLS [None]
  - COUGH [None]
  - DYSPNOEA [None]
  - EMPHYSEMA [None]
  - INCREASED UPPER AIRWAY SECRETION [None]
  - NAUSEA [None]
  - PAIN IN EXTREMITY [None]
  - RESPIRATORY TRACT INFLAMMATION [None]
